FAERS Safety Report 11103005 (Version 3)
Quarter: 2015Q2

REPORT INFORMATION
  Report Type: Spontaneous
  Country: AU (occurrence: AU)
  Receive Date: 20150511
  Receipt Date: 20150531
  Transmission Date: 20150821
  Serious: Yes (Death, Other)
  Sender: FDA-Public Use
  Company Number: AU-MYLANLABS-2015M1015477

PATIENT

DRUGS (2)
  1. TRAMADOL HYDROCHLORIDE. [Concomitant]
     Active Substance: TRAMADOL HYDROCHLORIDE
     Indication: PRODUCT USED FOR UNKNOWN INDICATION
     Dosage: UNK
  2. EPIPEN [Suspect]
     Active Substance: EPINEPHRINE
     Indication: ANAPHYLACTIC REACTION
     Dosage: UNK, ONCE
     Dates: start: 20140923, end: 20140923

REACTIONS (2)
  - Expired product administered [Unknown]
  - Drug ineffective [Fatal]

NARRATIVE: CASE EVENT DATE: 20140923
